FAERS Safety Report 25122313 (Version 1)
Quarter: 2025Q1

REPORT INFORMATION
  Report Type: Spontaneous
  Country: DE (occurrence: DE)
  Receive Date: 20250326
  Receipt Date: 20250326
  Transmission Date: 20250408
  Serious: Yes (Death)
  Sender: CATALYST PHARMA
  Company Number: DE-CATALYSTPHARMACEUTICALPARTNERS-DE-CATA-25-00428

PATIENT
  Age: 75 Year
  Sex: Male

DRUGS (13)
  1. FYCOMPA [Suspect]
     Active Substance: PERAMPANEL
     Indication: Seizure
     Dosage: 4.0 MILLIGRAM(S) (4 MILLIGRAM(S), 1 IN 1 DAY)
     Route: 048
  2. FYCOMPA [Suspect]
     Active Substance: PERAMPANEL
     Dosage: 3.0 MILLIGRAM(S) (3 MILLIGRAM(S), 1 IN 1 DAY)
     Route: 048
  3. FYCOMPA [Suspect]
     Active Substance: PERAMPANEL
     Dosage: 2.0 MILLIGRAM(S) (2 MILLIGRAM(S), 1 IN 1 DAY)
     Route: 048
  4. MOCLOBEMIDE [Concomitant]
     Active Substance: MOCLOBEMIDE
     Indication: Product used for unknown indication
     Route: 065
  5. SODIUM BICARBONATE [Concomitant]
     Active Substance: SODIUM BICARBONATE
     Indication: Product used for unknown indication
     Dosage: 2520 MILLIGRAM(S) (2520 MILLIGRAM(S), 1 IN 1 DAY)
     Route: 065
  6. PREGABALIN [Concomitant]
     Active Substance: PREGABALIN
     Indication: Product used for unknown indication
     Dosage: 75.0 MILLIGRAM(S) (75 MILLIGRAM(S), 1 IN 1 DAY)
     Route: 065
  7. PIPERACILLIN [Concomitant]
     Active Substance: PIPERACILLIN
     Indication: Product used for unknown indication
     Dosage: 4.0 MILLIGRAM(S) (4 MILLIGRAM(S), 1 IN 1 DAY)
     Route: 065
  8. TAZOBACTAN [Concomitant]
     Indication: Product used for unknown indication
     Route: 065
  9. CHOLECALCIFEROL [Concomitant]
     Active Substance: CHOLECALCIFEROL
     Indication: Product used for unknown indication
     Dosage: 2000 INTERNATIONAL UNIT(S) (2000 INTERNATIONAL UNIT(S), 1 IN 1 DAY)
     Route: 065
  10. TOLPERISONE HYDROCHLORIDE [Concomitant]
     Active Substance: TOLPERISONE HYDROCHLORIDE
     Indication: Product used for unknown indication
     Dosage: 150.0 MILLIGRAM(S) (150 MILLIGRAM(S), 1 IN 1 DAY)
     Route: 065
  11. ATORVASTATIN [Concomitant]
     Active Substance: ATORVASTATIN
     Indication: Product used for unknown indication
     Dosage: 40.0 MILLIGRAM(S) (40 MILLIGRAM(S), 1 IN 1 DAY)
     Route: 065
  12. ASPIRIN [Concomitant]
     Active Substance: ASPIRIN
     Indication: Product used for unknown indication
     Dosage: 100.0 MILLIGRAM(S) (100 MILLIGRAM(S), 1 IN 1 DAY)
     Route: 065
  13. SEVELAMER [Concomitant]
     Active Substance: SEVELAMER
     Indication: Product used for unknown indication
     Dosage: 1600 MILLIGRAM(S) (1600 MILLIGRAM(S), 1 IN 1 DAY)
     Route: 065

REACTIONS (3)
  - Death [Fatal]
  - Anticonvulsant drug level increased [Unknown]
  - Somnolence [Recovering/Resolving]

NARRATIVE: CASE EVENT DATE: 20250101
